FAERS Safety Report 5122599-2 (Version None)
Quarter: 2006Q4

REPORT INFORMATION
  Report Type: 
  Country: None (occurrence: None)
  Receive Date: 20061004
  Receipt Date: 20060926
  Transmission Date: 20070319
  Serious: Yes (Hospitalization)
  Sender: FDA-Public Use
  Company Number: GXKR2006GB05957

PATIENT
  Age: 69 Year
  Sex: Male

DRUGS (7)
  1. ASPIRIN [Suspect]
     Indication: MYOCARDIAL ISCHAEMIA
     Dosage: 75 MG, QD
     Dates: end: 20060822
  2. ANGILOL (PROPRANOLOL HYDROCHLORIDE) [Concomitant]
  3. GTN (GLYCERYL TRINITRATE) [Concomitant]
  4. ISOSORBIDE MONONITRATE [Concomitant]
  5. SALBUTAMOL (SALBUTAMOL) [Concomitant]
  6. SPIRIVA [Concomitant]
  7. UNIPHYL [Concomitant]

REACTIONS (5)
  - BOWEL MOVEMENT IRREGULARITY [None]
  - FAECES DISCOLOURED [None]
  - GASTRIC ULCER [None]
  - HELICOBACTER GASTRITIS [None]
  - IMPAIRED HEALING [None]
